FAERS Safety Report 21175371 (Version 4)
Quarter: 2022Q4

REPORT INFORMATION
  Report Type: Report from Study
  Country: US (occurrence: US)
  Receive Date: 20220805
  Receipt Date: 20221116
  Transmission Date: 20230112
  Serious: Yes (Hospitalization, Other)
  Sender: FDA-Public Use
  Company Number: US-ABBVIE-22K-163-4467336-00

PATIENT
  Sex: Female

DRUGS (3)
  1. VENCLEXTA [Suspect]
     Active Substance: VENETOCLAX
     Indication: Acute myeloid leukaemia recurrent
     Route: 048
     Dates: start: 20220623, end: 2022
  2. VENCLEXTA [Suspect]
     Active Substance: VENETOCLAX
     Indication: Acute myeloid leukaemia recurrent
     Route: 048
     Dates: start: 20220823, end: 2022
  3. VENCLEXTA [Suspect]
     Active Substance: VENETOCLAX
     Indication: Acute myeloid leukaemia recurrent
     Route: 048
     Dates: start: 2022, end: 2022

REACTIONS (14)
  - Hospitalisation [Unknown]
  - Arthralgia [Recovering/Resolving]
  - Pyrexia [Recovering/Resolving]
  - Oedema peripheral [Recovering/Resolving]
  - Contusion [Recovering/Resolving]
  - White blood cell count decreased [Recovering/Resolving]
  - Skin fissures [Recovering/Resolving]
  - Eye contusion [Recovering/Resolving]
  - Arthralgia [Recovering/Resolving]
  - Fall [Recovered/Resolved]
  - Red blood cell count decreased [Recovering/Resolving]
  - Neutrophil count decreased [Recovering/Resolving]
  - Fatigue [Not Recovered/Not Resolved]
  - Peripheral swelling [Unknown]

NARRATIVE: CASE EVENT DATE: 20220101
